FAERS Safety Report 4983743-0 (Version None)
Quarter: 2006Q1

REPORT INFORMATION
  Report Type: 
  Country: None (occurrence: None)
  Receive Date: 20060301
  Receipt Date: 20060103
  Transmission Date: 20060701
  Serious: No
  Sender: FDA-Public Use
  Company Number: S06-USA-00103-01

PATIENT
  Age: 83 Year
  Sex: Male

DRUGS (12)
  1. NAMENDA [Suspect]
     Indication: AMNESIA
     Dosage: 5 MG BID PO
     Route: 048
     Dates: start: 20051224, end: 20051230
  2. NAMENDA [Suspect]
     Indication: AMNESIA
     Dosage: 15 MG QD PO
     Route: 048
     Dates: start: 20051231
  3. NAMENDA [Suspect]
     Indication: AMNESIA
     Dosage: 5 MG QD PO
     Route: 048
     Dates: start: 20051217, end: 20051223
  4. EXELON [Concomitant]
  5. ALPHAGAN [Concomitant]
  6. PILOCARPINE [Concomitant]
  7. XALATAN [Concomitant]
  8. ACCUPRIL [Concomitant]
  9. ISOSORBIDE [Concomitant]
  10. LIPITOR [Concomitant]
  11. FLOMAX [Concomitant]
  12. PROSCAR [Concomitant]

REACTIONS (1)
  - HEADACHE [None]
